FAERS Safety Report 12539423 (Version 2)
Quarter: 2016Q3

REPORT INFORMATION
  Report Type: Spontaneous
  Country: MX (occurrence: MX)
  Receive Date: 20160708
  Receipt Date: 20160722
  Transmission Date: 20161109
  Serious: Yes (Other)
  Sender: FDA-Public Use
  Company Number: MX-ROCHE-1790914

PATIENT
  Age: 92 Year
  Sex: Male
  Weight: 71 kg

DRUGS (3)
  1. GAZYVA [Suspect]
     Active Substance: OBINUTUZUMAB
     Indication: CHRONIC LYMPHOCYTIC LEUKAEMIA
     Dosage: CYCLE 1,DAY 1
     Route: 042
     Dates: start: 20160627, end: 20160627
  2. MOXIFLOXACIN. [Concomitant]
     Active Substance: MOXIFLOXACIN
     Dosage: 7 DAYS OF TREATMENT
     Route: 048
  3. GAZYVA [Suspect]
     Active Substance: OBINUTUZUMAB
     Dosage: CYCLE 1,DAY 2
     Route: 042
     Dates: start: 20160628, end: 20160628

REACTIONS (2)
  - Pyrexia [Recovered/Resolved]
  - Pancytopenia [Not Recovered/Not Resolved]

NARRATIVE: CASE EVENT DATE: 20160628
